FAERS Safety Report 10228095 (Version 1)
Quarter: 2014Q2

REPORT INFORMATION
  Report Type: Spontaneous
  Country: GB (occurrence: GB)
  Receive Date: 20140610
  Receipt Date: 20140610
  Transmission Date: 20141212
  Serious: Yes (Hospitalization, Other)
  Sender: FDA-Public Use
  Company Number: PHHY2014GB067607

PATIENT
  Age: 19 Year
  Sex: Female
  Weight: 95 kg

DRUGS (3)
  1. CHLORPROMAZINE [Suspect]
     Indication: AFFECTIVE DISORDER
     Route: 048
     Dates: start: 20140516, end: 20140521
  2. SUMATRIPTAN [Suspect]
     Indication: MIGRAINE
     Route: 048
     Dates: start: 20140516, end: 20140521
  3. SERTRALINE [Concomitant]

REACTIONS (8)
  - Loss of consciousness [Recovering/Resolving]
  - Convulsion [Not Recovered/Not Resolved]
  - Affect lability [Recovered/Resolved with Sequelae]
  - Nausea [Not Recovered/Not Resolved]
  - Condition aggravated [Unknown]
  - Anger [Unknown]
  - Crying [Unknown]
  - Head discomfort [Unknown]
